FAERS Safety Report 5399957-4 (Version None)
Quarter: 2007Q3

REPORT INFORMATION
  Report Type: 
  Country: None (occurrence: None)
  Receive Date: 20070727
  Receipt Date: 20070727
  Transmission Date: 20080115
  Serious: Yes (Death)
  Sender: FDA-Public Use
  Company Number: None

PATIENT
  Age: 81 Year
  Sex: Female
  Weight: 39.4629 kg

DRUGS (2)
  1. VISUDYNE [Suspect]
     Dosage: 4.8 ML I.V.
     Route: 042
     Dates: start: 20061004
  2. AVASTIN [Suspect]
     Dosage: 1.25 MG INTRAVITREAL
     Dates: start: 20061004

REACTIONS (2)
  - CHRONIC OBSTRUCTIVE PULMONARY DISEASE [None]
  - RESPIRATORY FAILURE [None]
